FAERS Safety Report 22014739 (Version 8)
Quarter: 2023Q4

REPORT INFORMATION
  Report Type: Spontaneous
  Country: US (occurrence: US)
  Receive Date: 20230221
  Receipt Date: 20231102
  Transmission Date: 20240110
  Serious: Yes (Other)
  Sender: FDA-Public Use
  Company Number: US-BRISTOL-MYERS SQUIBB COMPANY-2023-024813

PATIENT
  Age: 87 Year
  Sex: Female

DRUGS (3)
  1. LENALIDOMIDE [Suspect]
     Active Substance: LENALIDOMIDE
     Indication: Thrombocytopenia
     Dosage: FREQ: TAKE 1 CAPSULE BY MOUTH DAILY FOR 14 DAYS ON DAYS 1-14 OF EACH 21-DAY CHEMOTHERAPY CYCLE.
     Route: 048
     Dates: start: 20220311
  2. LENALIDOMIDE [Suspect]
     Active Substance: LENALIDOMIDE
     Dosage: TAKE 1 CAPSULE BY MOUTH EVERY DAY FOR 14 DAYS OF EACH 21 DAY CYCLE
     Route: 048
     Dates: start: 20190803
  3. LENALIDOMIDE [Suspect]
     Active Substance: LENALIDOMIDE
     Dosage: TAKE 1 CAPSULE BY MOUTH DAILY ON DAYS 1-14 OF EACH 21 DAY OF CHEMOTHERAPY CYCLE
     Route: 048
     Dates: start: 20221126

REACTIONS (9)
  - Hypoaesthesia [Not Recovered/Not Resolved]
  - Peripheral swelling [Not Recovered/Not Resolved]
  - Paraesthesia [Not Recovered/Not Resolved]
  - Off label use [Unknown]
  - Productive cough [Not Recovered/Not Resolved]
  - Neuropathy peripheral [Not Recovered/Not Resolved]
  - Seasonal allergy [Not Recovered/Not Resolved]
  - Product colour issue [Unknown]
  - Pain in extremity [Not Recovered/Not Resolved]

NARRATIVE: CASE EVENT DATE: 20210101
